FAERS Safety Report 21422162 (Version 1)
Quarter: 2022Q4

REPORT INFORMATION
  Report Type: Spontaneous
  Country: US (occurrence: None)
  Receive Date: 20221006
  Receipt Date: 20221006
  Transmission Date: 20230113
  Serious: Yes (Hospitalization)
  Sender: FDA-Public Use
  Company Number: None

PATIENT
  Age: 50 Year
  Sex: Male
  Weight: 64.17 kg

DRUGS (1)
  1. BREYANZI [Suspect]
     Active Substance: LISOCABTAGENE MARALEUCEL
     Route: 042
     Dates: start: 20220509, end: 20220509

REACTIONS (7)
  - Cytokine release syndrome [None]
  - Neurotoxicity [None]
  - Pyrexia [None]
  - Hypotension [None]
  - Aphasia [None]
  - Aphasia [None]
  - Dysarthria [None]

NARRATIVE: CASE EVENT DATE: 20220515
